FAERS Safety Report 7937526-X (Version None)
Quarter: 2011Q4

REPORT INFORMATION
  Report Type: 
  Country: None (occurrence: None)
  Receive Date: 20111123
  Receipt Date: 20111114
  Transmission Date: 20120403
  Serious: Yes (Other)
  Sender: FDA-Public Use
  Company Number: US-BAYER-2011-001157

PATIENT
  Age: 24 Year
  Sex: Female
  Weight: 94.45 kg

DRUGS (17)
  1. REGLAN [Concomitant]
     Dosage: 10 MG, QID
     Route: 048
  2. YAZ [Suspect]
     Indication: MENSTRUATION IRREGULAR
  3. YAZ [Suspect]
     Indication: PREMENSTRUAL SYNDROME
  4. YASMIN [Suspect]
     Indication: PREMENSTRUAL SYNDROME
  5. LITHIUM CARBONATE [Concomitant]
     Dosage: 300 MG, OM
     Route: 048
  6. TRAMADOL HCL [Concomitant]
     Dosage: 50 MG, UNK
     Route: 048
  7. YASMIN [Suspect]
     Indication: MENSTRUATION IRREGULAR
  8. DROSPIRENONE AND ETHINYL ESTRADIOL [Suspect]
     Indication: MENSTRUATION IRREGULAR
  9. SEROQUEL [Concomitant]
     Dosage: 400 MG, HS
     Route: 048
  10. DROSPIRENONE AND ETHINYL ESTRADIOL [Suspect]
     Indication: PREMENSTRUAL SYNDROME
  11. BENTYL [Concomitant]
     Dosage: 20 MG, TID
     Route: 048
  12. YAZ [Suspect]
     Indication: CONTRACEPTION
     Dosage: UNK
     Dates: start: 20090601, end: 20100801
  13. YASMIN [Suspect]
     Indication: CONTRACEPTION
     Dosage: UNK
     Dates: start: 20040101, end: 20080601
  14. MELATONIN [Concomitant]
     Dosage: 3 MG, HS
  15. NEXIUM [Concomitant]
     Dosage: 40 MG, BID
     Route: 048
  16. DROSPIRENONE AND ETHINYL ESTRADIOL [Suspect]
     Indication: CONTRACEPTION
     Dosage: UNK
     Dates: start: 20080601, end: 20090601
  17. SYNTHROID [Concomitant]
     Dosage: 0.025 MG, QD
     Route: 048

REACTIONS (10)
  - GASTRITIS [None]
  - HEPATIC STEATOSIS [None]
  - DEEP VEIN THROMBOSIS [None]
  - ABDOMINAL PAIN [None]
  - NAUSEA [None]
  - MUSCLE SPASMS [None]
  - OESOPHAGITIS [None]
  - PAIN IN EXTREMITY [None]
  - VOMITING [None]
  - CHOLECYSTITIS CHRONIC [None]
